FAERS Safety Report 9717498 (Version 1)
Quarter: 2013Q4

REPORT INFORMATION
  Report Type: Spontaneous
  Country: US (occurrence: US)
  Receive Date: 20131127
  Receipt Date: 20131127
  Transmission Date: 20140711
  Serious: No
  Sender: FDA-Public Use
  Company Number: US-GILEAD-2009-0020459

PATIENT
  Age: 42 Year
  Sex: Female
  Weight: 54.88 kg

DRUGS (9)
  1. LETAIRIS [Suspect]
     Indication: PULMONARY ARTERIAL HYPERTENSION
     Route: 048
     Dates: start: 20080910, end: 20090220
  2. YAZ [Concomitant]
  3. HUMULIN N [Concomitant]
  4. LANTUS [Concomitant]
  5. SPIRONOLACTONE [Concomitant]
  6. LISINOPRIL [Concomitant]
  7. LASIX [Concomitant]
  8. CREON [Concomitant]
  9. PROTONIX [Concomitant]

REACTIONS (1)
  - Liver function test abnormal [Unknown]
